FAERS Safety Report 22015220 (Version 1)
Quarter: 2023Q1

REPORT INFORMATION
  Report Type: Spontaneous
  Country: FR (occurrence: FR)
  Receive Date: 20230221
  Receipt Date: 20230221
  Transmission Date: 20230417
  Serious: Yes (Other)
  Sender: FDA-Public Use
  Company Number: None

PATIENT
  Age: 64 Year
  Sex: Male

DRUGS (10)
  1. TOPIRAMATE [Interacting]
     Active Substance: TOPIRAMATE
     Indication: Essential tremor
     Dates: start: 202208
  2. FLUINDIONE [Interacting]
     Active Substance: FLUINDIONE
     Indication: Atrial fibrillation
     Dosage: SCORED TABLET, STRENGTH: 20 MG
  3. RIVOTRIL [Concomitant]
     Active Substance: CLONAZEPAM
  4. AMIODARONE [Concomitant]
     Active Substance: AMIODARONE
  5. METFORMIN [Concomitant]
     Active Substance: METFORMIN HYDROCHLORIDE
  6. JANUMET [Concomitant]
     Active Substance: METFORMIN HYDROCHLORIDE\SITAGLIPTIN PHOSPHATE
  7. GLICLAZIDE [Concomitant]
     Active Substance: GLICLAZIDE
  8. SIMVASTATIN [Concomitant]
     Active Substance: SIMVASTATIN
  9. RAMIPRIL [Concomitant]
     Active Substance: RAMIPRIL
  10. METOPROLOL [Concomitant]
     Active Substance: METOPROLOL

REACTIONS (2)
  - Drug interaction [Unknown]
  - International normalised ratio decreased [Recovered/Resolved]

NARRATIVE: CASE EVENT DATE: 20220101
